FAERS Safety Report 8810293 (Version 2)
Quarter: 2012Q4

REPORT INFORMATION
  Report Type: 
  Country: US (occurrence: US)
  Receive Date: 20120926
  Receipt Date: 20121009
  Transmission Date: 20130627
  Serious: No
  Sender: FDA-Public Use
  Company Number: US-009507513-1209USA006947

PATIENT

DRUGS (1)
  1. EMEND [Suspect]
     Indication: NAUSEA
     Dosage: 125mg-80mg, qd
     Route: 048

REACTIONS (1)
  - Constipation [Unknown]
